FAERS Safety Report 22036013 (Version 1)
Quarter: 2023Q1

REPORT INFORMATION
  Report Type: Spontaneous
  Country: US (occurrence: US)
  Receive Date: 20230224
  Receipt Date: 20230224
  Transmission Date: 20230418
  Serious: Yes (Hospitalization, Other)
  Sender: FDA-Public Use
  Company Number: US-SABAL THERAPEUTICS LLC-2023-ATH-000005

PATIENT

DRUGS (4)
  1. OZOBAX [Suspect]
     Active Substance: BACLOFEN
     Indication: Back pain
     Dosage: 10 MG
     Route: 065
  2. PANTOPRAZOLE [Concomitant]
     Active Substance: PANTOPRAZOLE
     Indication: Gastrooesophageal reflux disease
  3. NITROGLYCERIN [Concomitant]
     Active Substance: NITROGLYCERIN
     Indication: Coronary artery disease
  4. METOPROLOL [Concomitant]
     Active Substance: METOPROLOL
     Indication: Coronary artery disease

REACTIONS (9)
  - Serotonin syndrome [Recovered/Resolved]
  - Mobility decreased [Recovered/Resolved]
  - Mental status changes [Recovered/Resolved]
  - Musculoskeletal stiffness [Recovered/Resolved]
  - Tremor [Recovered/Resolved]
  - Myoclonus [Recovered/Resolved]
  - Pyrexia [Recovered/Resolved]
  - Hypertonia [Recovered/Resolved]
  - Off label use [Unknown]
